FAERS Safety Report 18984945 (Version 1)
Quarter: 2021Q1

REPORT INFORMATION
  Report Type: Other
  Country: TR (occurrence: TR)
  Receive Date: 20210309
  Receipt Date: 20210309
  Transmission Date: 20210420
  Serious: Yes (Hospitalization)
  Sender: FDA-Public Use
  Company Number: TR-ORCHID HEALTHCARE-2107741

PATIENT
  Age: 17 Year
  Sex: Female

DRUGS (1)
  1. ARIPIPRAZOLE, TABLET [Suspect]
     Active Substance: ARIPIPRAZOLE
     Indication: MAJOR DEPRESSION
     Route: 065

REACTIONS (4)
  - Hyperprolactinaemia [Recovered/Resolved]
  - Blood thyroid stimulating hormone increased [Recovered/Resolved]
  - Thyroxine free decreased [Recovered/Resolved]
  - Tri-iodothyronine free decreased [Recovered/Resolved]
